FAERS Safety Report 6314869-7 (Version None)
Quarter: 2009Q3

REPORT INFORMATION
  Report Type: 
  Country: None (occurrence: None)
  Receive Date: 20090814
  Receipt Date: 20090814
  Transmission Date: 20100115
  Serious: Yes (Other)
  Sender: FDA-Public Use
  Company Number: None

PATIENT
  Age: 66 Year
  Sex: Male
  Weight: 110.4 kg

DRUGS (5)
  1. TEMODAR [Suspect]
     Indication: GLIOBLASTOMA MULTIFORME
     Dosage: 175MG QD PO
     Route: 048
  2. DEXAMETHASONE [Concomitant]
  3. PEPCID [Concomitant]
  4. KEPPRA [Concomitant]
  5. GLIPIZIDE [Concomitant]

REACTIONS (2)
  - INCORRECT DOSE ADMINISTERED [None]
  - PLATELET COUNT DECREASED [None]
